FAERS Safety Report 6971477-2 (Version None)
Quarter: 2010Q3

REPORT INFORMATION
  Report Type: 
  Country: None (occurrence: None)
  Receive Date: 20100908
  Receipt Date: 20100827
  Transmission Date: 20110219
  Serious: Yes (Hospitalization, Other)
  Sender: FDA-Public Use
  Company Number: US-PFIZER INC-2010108446

PATIENT
  Sex: Female
  Weight: 107.94 kg

DRUGS (7)
  1. LYRICA [Suspect]
     Indication: FIBROMYALGIA
     Dosage: 300 MG, 1X/DAY
     Route: 048
     Dates: start: 20090101
  2. PRISTIQ [Suspect]
     Indication: FIBROMYALGIA
     Dosage: 50 MG, 2X/DAY
     Route: 048
     Dates: start: 20090101
  3. FENTANYL [Concomitant]
     Indication: NECK PAIN
     Dosage: 75 UG, EVERY 3 DAYS
     Route: 062
  4. OXYCODONE HCL AND ACETAMINOPHEN [Concomitant]
     Indication: NECK PAIN
     Dosage: 10/325 MG DAILY
  5. WELLBUTRIN [Concomitant]
     Dosage: 75 MG, 1X/DAY
     Route: 048
  6. ALDACTONE [Concomitant]
     Indication: ACNE
     Dosage: 50 MG, 2X/DAY
     Route: 048
  7. XANAX [Concomitant]
     Dosage: 1 MG, UNK
     Route: 048

REACTIONS (9)
  - CONFUSIONAL STATE [None]
  - EXPIRED DRUG ADMINISTERED [None]
  - HEAD INJURY [None]
  - MALAISE [None]
  - MIGRAINE [None]
  - PAIN [None]
  - ROAD TRAFFIC ACCIDENT [None]
  - SPEECH DISORDER [None]
  - VOMITING [None]
